FAERS Safety Report 10061670 (Version 1)
Quarter: 2014Q2

REPORT INFORMATION
  Report Type: Spontaneous
  Country: FR (occurrence: None)
  Receive Date: 20140403
  Receipt Date: 20140403
  Transmission Date: 20141212
  Serious: Yes (Hospitalization)
  Sender: FDA-Public Use
  Company Number: 2263747

PATIENT
  Age: 44 Year
  Sex: Male

DRUGS (14)
  1. VINCRISTINE SULFATE [Suspect]
     Indication: PRODUCT USED FOR UNKNOWN INDICATION
     Route: 042
     Dates: start: 20140219, end: 20140219
  2. METHOTREXATE [Suspect]
     Indication: PRODUCT USED FOR UNKNOWN INDICATION
     Route: 042
     Dates: start: 20140219, end: 20140219
  3. CYCLOPHOSPHAMIDE [Concomitant]
  4. CYTARABINE [Concomitant]
  5. METHYLPREDNISOLONE [Concomitant]
  6. RITUXIMAB [Concomitant]
  7. AMLODIPINE [Concomitant]
  8. TRANDATE [Concomitant]
  9. SOLUPRED /00016201/ [Concomitant]
  10. FASTURTEC [Concomitant]
  11. ZOPHREN /00955301/ [Concomitant]
  12. ACUPAN [Concomitant]
  13. SKENAN [Concomitant]
  14. LOVENOX [Concomitant]

REACTIONS (1)
  - Hepatocellular injury [None]
